APPROVED DRUG PRODUCT: SILODOSIN
Active Ingredient: SILODOSIN
Strength: 4MG
Dosage Form/Route: CAPSULE;ORAL
Application: A209029 | Product #001 | TE Code: AB
Applicant: PRINSTON PHARMACEUTICAL INC
Approved: Jan 4, 2022 | RLD: No | RS: No | Type: RX